FAERS Safety Report 8411421-4 (Version None)
Quarter: 2012Q2

REPORT INFORMATION
  Report Type: 
  Country: None (occurrence: None)
  Receive Date: 20120605
  Receipt Date: 20120507
  Transmission Date: 20120825
  Serious: No
  Sender: FDA-Public Use
  Company Number: US-AMGEN-USASP2012028711

PATIENT
  Age: 61 Year
  Sex: Female

DRUGS (11)
  1. DIOVAN [Concomitant]
     Dosage: UNK MG, UNK
  2. CARDIZEM CD [Concomitant]
     Dosage: UNK MG, UNK
  3. KLONOPIN [Concomitant]
     Dosage: UNK MG, UNK
  4. AMBIEN [Concomitant]
     Dosage: UNK MG, UNK
  5. ELMIRON [Concomitant]
     Dosage: UNK MG, UNK
  6. VITAMIN D [Concomitant]
     Dosage: UNK
  7. PRILOSEC [Concomitant]
     Dosage: UNK MG, UNK
  8. ENBREL [Suspect]
     Indication: RHEUMATOID ARTHRITIS
     Dosage: 50 MG, QWK
     Dates: start: 20110201
  9. FOLIC ACID [Concomitant]
     Dosage: UNK
  10. HYDROCHLOROTHIAZIDE [Concomitant]
     Dosage: UNK MG, UNK
  11. VICODIN [Concomitant]
     Dosage: UNK

REACTIONS (1)
  - ALOPECIA [None]
